FAERS Safety Report 11512305 (Version 1)
Quarter: 2015Q3

REPORT INFORMATION
  Report Type: Spontaneous
  Country: US (occurrence: None)
  Receive Date: 20150915
  Receipt Date: 20150915
  Transmission Date: 20151125
  Serious: Yes (Death)
  Sender: FDA-Public Use
  Company Number: None

PATIENT
  Age: 66 Year
  Sex: Female

DRUGS (1)
  1. FARYDAK [Suspect]
     Active Substance: PANOBINOSTAT
     Indication: PLASMA CELL MYELOMA
     Dosage: 20MG 1 CAP QOD X 2 WEEKS EVERY 21 DAYS ORAL
     Route: 048
     Dates: start: 20150804

REACTIONS (1)
  - Death [None]

NARRATIVE: CASE EVENT DATE: 20150829
